FAERS Safety Report 6384665-3 (Version None)
Quarter: 2009Q4

REPORT INFORMATION
  Report Type: 
  Country: None (occurrence: None)
  Receive Date: 20091001
  Receipt Date: 20090925
  Transmission Date: 20100525
  Serious: Yes (Life-Threatening, Hospitalization)
  Sender: FDA-Public Use
  Company Number: PHHY2009CA41595

PATIENT
  Age: 62 Year
  Sex: Female
  Weight: 96.145 kg

DRUGS (8)
  1. RASILEZ [Suspect]
     Indication: HYPERTENSION
     Dosage: 150 MG, QD
     Dates: start: 20090915, end: 20090918
  2. BISOPROLOL FUMARATE [Concomitant]
     Dosage: 2.5 MG DAILY
  3. BISOPROLOL FUMARATE [Concomitant]
     Dosage: 5 MG DAILY
  4. CYMBALTA [Concomitant]
     Dosage: 600 MG DAILY
  5. ELTROXIN [Concomitant]
     Dosage: 100 MCG DAILY
  6. LYRICA [Concomitant]
     Dosage: 75 MG, BID
  7. EZETROL [Concomitant]
     Dosage: 10 MG, QHS
  8. ZOPICLONE [Concomitant]
     Dosage: 7.5 MG, QHS

REACTIONS (3)
  - CAROTID PULSE [None]
  - HEADACHE [None]
  - HYPERTENSION [None]
